FAERS Safety Report 8089043-7 (Version None)
Quarter: 2012Q1

REPORT INFORMATION
  Report Type: 
  Country: None (occurrence: None)
  Receive Date: 20120128
  Receipt Date: 20110617
  Transmission Date: 20120608
  Serious: No
  Sender: FDA-Public Use
  Company Number: US-ABBOTT-11P-163-0696457-00

PATIENT
  Sex: Female
  Weight: 48.124 kg

DRUGS (1)
  1. HUMIRA [Suspect]
     Indication: CROHN'S DISEASE
     Route: 058
     Dates: start: 20101210

REACTIONS (5)
  - INJECTION SITE PAIN [None]
  - ILL-DEFINED DISORDER [None]
  - WRONG TECHNIQUE IN DRUG USAGE PROCESS [None]
  - NEEDLE ISSUE [None]
  - DEVICE MALFUNCTION [None]
